FAERS Safety Report 22101421 (Version 7)
Quarter: 2024Q1

REPORT INFORMATION
  Report Type: Spontaneous
  Country: CA (occurrence: CA)
  Receive Date: 20230316
  Receipt Date: 20240122
  Transmission Date: 20240409
  Serious: Yes (Other)
  Sender: FDA-Public Use
  Company Number: CA-PFIZER INC-202300005746

PATIENT
  Age: 24 Year
  Sex: Female
  Weight: 55 kg

DRUGS (7)
  1. ABRILADA [Suspect]
     Active Substance: ADALIMUMAB-AFZB
     Indication: Colitis ulcerative
     Dosage: 160 MG, 160 MG,W0, 80MG W2 THEN 40MG Q 2 WEEKS STARTING W4
     Route: 058
     Dates: start: 20221217
  2. ABRILADA [Suspect]
     Active Substance: ADALIMUMAB-AFZB
     Dosage: 1 DF, 160MG W0, 80MG W2 THEN 40MG Q 2 WEEKS
     Route: 058
     Dates: start: 20221217, end: 2023
  3. ABRILADA [Suspect]
     Active Substance: ADALIMUMAB-AFZB
     Dosage: 80 MG, 160 MG,W0, 80MG W2 THEN 40MG Q 2 WEEKS STARTING W4
     Route: 058
     Dates: start: 20221230
  4. MESALAMINE [Concomitant]
     Active Substance: MESALAMINE
     Dosage: 4800 MG
  5. MESALAMINE [Concomitant]
     Active Substance: MESALAMINE
     Dosage: 1 DF
  6. MESALAMINE [Concomitant]
     Active Substance: MESALAMINE
     Dosage: UNK UNK, AS NEEDED
  7. MESALAMINE [Concomitant]
     Active Substance: MESALAMINE
     Dosage: 3 G, DAILY
     Route: 048

REACTIONS (9)
  - Wisdom teeth removal [Unknown]
  - Condition aggravated [Not Recovered/Not Resolved]
  - Illness [Not Recovered/Not Resolved]
  - Oropharyngeal pain [Not Recovered/Not Resolved]
  - Headache [Not Recovered/Not Resolved]
  - Stress [Unknown]
  - Faecal calprotectin increased [Unknown]
  - Drug level above therapeutic [Unknown]
  - Off label use [Unknown]

NARRATIVE: CASE EVENT DATE: 20230101
